FAERS Safety Report 23795780 (Version 1)
Quarter: 2024Q2

REPORT INFORMATION
  Report Type: Other
  Country: CN (occurrence: CN)
  Receive Date: 20240429
  Receipt Date: 20240429
  Transmission Date: 20240716
  Serious: Yes (Hospitalization, Other)
  Sender: FDA-Public Use
  Company Number: CN-GE HEALTHCARE-2024CSU004259

PATIENT
  Age: 71 Year
  Sex: Female
  Weight: 58 kg

DRUGS (4)
  1. VISIPAQUE [Suspect]
     Active Substance: IODIXANOL
     Indication: Coronary arterial stent insertion
     Dosage: 200 ML, TOTAL
     Route: 013
     Dates: start: 20240415, end: 20240415
  2. VISIPAQUE [Suspect]
     Active Substance: IODIXANOL
     Indication: Coronary angioplasty
  3. VISIPAQUE [Suspect]
     Active Substance: IODIXANOL
     Indication: Angiocardiogram
  4. VISIPAQUE [Suspect]
     Active Substance: IODIXANOL
     Indication: Angiocardiogram

REACTIONS (6)
  - Temperature intolerance [Recovering/Resolving]
  - Feeling cold [Recovering/Resolving]
  - Body temperature increased [Recovered/Resolved]
  - Headache [Recovering/Resolving]
  - Nausea [Recovering/Resolving]
  - Vomiting [Recovered/Resolved]

NARRATIVE: CASE EVENT DATE: 20240415
